FAERS Safety Report 9197037 (Version 2)
Quarter: 2013Q2

REPORT INFORMATION
  Report Type: Report from Study
  Country: AU (occurrence: AU)
  Receive Date: 20130328
  Receipt Date: 20130415
  Transmission Date: 20140414
  Serious: Yes (Hospitalization)
  Sender: FDA-Public Use
  Company Number: AU-ROCHE-1187656

PATIENT
  Age: 55 Year
  Sex: Male
  Weight: 87 kg

DRUGS (17)
  1. RHUPH20/RITUXIMAB [Suspect]
     Indication: CHRONIC LYMPHOCYTIC LEUKAEMIA
     Dosage: LAST DOSE ON 12/FEB/2013, LAST DOSE TAKEN-1600MG
     Route: 058
     Dates: start: 20121009
  2. CYCLOPHOSPHAMIDE [Suspect]
     Indication: CHRONIC LYMPHOCYTIC LEUKAEMIA
     Dosage: CYCLE -4300MG COMMENCING DOSE FOR 5 DAYS, LAST DOSE OF ORAL CYCLOPHOSPHAMIDE 19 JAN 2013.,
     Route: 048
     Dates: start: 20130115
  3. PEGFILGRASTIM [Concomitant]
     Indication: NEUTROPENIA
     Route: 065
     Dates: start: 20121109
  4. PARACETAMOL [Concomitant]
     Indication: PREMEDICATION
     Route: 065
     Dates: start: 20121009
  5. PROMETHAZINE [Concomitant]
     Indication: PREMEDICATION
     Route: 065
     Dates: start: 20121009
  6. FAMCICLOVIR [Concomitant]
     Indication: PROPHYLAXIS
     Route: 065
     Dates: start: 20121010
  7. BACTRIM DS [Concomitant]
     Indication: PROPHYLAXIS
     Route: 065
     Dates: start: 20121010
  8. PANAMAX [Concomitant]
     Indication: MYALGIA
     Route: 065
     Dates: start: 20121122
  9. PANADEINE FORTE [Concomitant]
     Indication: MYALGIA
     Route: 065
     Dates: start: 20121122
  10. PANADEINE FORTE [Concomitant]
     Indication: BONE PAIN
     Route: 065
     Dates: start: 20121130
  11. PANADOL OSTEO [Concomitant]
     Indication: BACK PAIN
     Route: 065
     Dates: start: 20130107, end: 20130312
  12. PANADOL OSTEO [Concomitant]
     Indication: MYALGIA
     Route: 065
     Dates: start: 20130313
  13. PANADOL OSTEO [Concomitant]
     Indication: BONE PAIN
  14. PANADOL OSTEO [Concomitant]
     Indication: PROPHYLAXIS
  15. APO-MELOXICAM [Concomitant]
     Indication: BACK PAIN
     Route: 065
     Dates: start: 20130108
  16. FLUCONAZOLE [Concomitant]
     Indication: PROPHYLAXIS
     Route: 065
     Dates: start: 20121218
  17. PANADOL [Concomitant]
     Indication: UPPER RESPIRATORY TRACT INFECTION
     Route: 065
     Dates: start: 20120406

REACTIONS (2)
  - Cystitis haemorrhagic [Recovered/Resolved]
  - Meralgia paraesthetica [Recovered/Resolved]
